FAERS Safety Report 10244494 (Version 3)
Quarter: 2016Q2

REPORT INFORMATION
  Report Type: Spontaneous
  Country: CA (occurrence: CA)
  Receive Date: 20140618
  Receipt Date: 20160531
  Transmission Date: 20160815
  Serious: Yes (Hospitalization, Other)
  Sender: FDA-Public Use
  Company Number: CA-GLAXOSMITHKLINE-A1077176A

PATIENT
  Age: 56 Year
  Sex: Female

DRUGS (2)
  1. BENLYSTA [Suspect]
     Active Substance: BELIMUMAB
     Indication: SYSTEMIC LUPUS ERYTHEMATOSUS
     Dosage: INFUSION AT WEEK 0, 2, 4 AND THEN EVERY 4 WEEKS
     Route: 042
     Dates: start: 20130719
  2. BENLYSTA [Suspect]
     Active Substance: BELIMUMAB
     Dosage: 880 MG, Q4
     Route: 042

REACTIONS (10)
  - Knee arthroplasty [Unknown]
  - Weight increased [Unknown]
  - Back pain [Unknown]
  - Memory impairment [Unknown]
  - Condition aggravated [Unknown]
  - Neck pain [Unknown]
  - Osteoarthritis [Unknown]
  - Drug ineffective [Unknown]
  - Insomnia [Unknown]
  - Disturbance in attention [Unknown]

NARRATIVE: CASE EVENT DATE: 20140428
